FAERS Safety Report 19029487 (Version 1)
Quarter: 2021Q1

REPORT INFORMATION
  Report Type: Spontaneous
  Country: US (occurrence: US)
  Receive Date: 20210317
  Receipt Date: 20210317
  Transmission Date: 20210420
  Serious: Yes (Hospitalization)
  Sender: FDA-Public Use
  Company Number: None

PATIENT
  Sex: Male

DRUGS (2)
  1. TACROLIMUS (STRIDES) 1MG STRIDES PHARMA [Suspect]
     Active Substance: TACROLIMUS
     Indication: LUNG TRANSPLANT
     Dosage: ?          OTHER DOSE:4/3 CAPS;OTHER FREQUENCY:AM/PM;?
     Route: 048
     Dates: start: 2020
  2. TACROLIMUS (ACCORD) ++ 0.5MG ACCORD HEALTHCARE [Suspect]
     Active Substance: TACROLIMUS
     Indication: LUNG TRANSPLANT
     Route: 048
     Dates: start: 2020

REACTIONS (4)
  - Dyspnoea [None]
  - Transplant rejection [None]
  - Product distribution issue [None]
  - Therapy interrupted [None]
